FAERS Safety Report 9502457 (Version 2)
Quarter: 2013Q4

REPORT INFORMATION
  Report Type: Spontaneous
  Country: US (occurrence: US)
  Receive Date: 20130906
  Receipt Date: 20131002
  Transmission Date: 20140711
  Serious: No
  Sender: FDA-Public Use
  Company Number: US-009507513-1309USA000753

PATIENT
  Age: 76 Year
  Sex: Female
  Weight: 71.66 kg

DRUGS (1)
  1. LIPTRUZET [Suspect]
     Indication: BLOOD CHOLESTEROL INCREASED
     Dosage: TABLET AT BEDTIME
     Route: 048
     Dates: start: 20130820, end: 20130828

REACTIONS (1)
  - Myalgia [Recovered/Resolved]
